FAERS Safety Report 9465969 (Version 1)
Quarter: 2013Q3

REPORT INFORMATION
  Report Type: Spontaneous
  Country: IL (occurrence: IL)
  Receive Date: 20130820
  Receipt Date: 20130820
  Transmission Date: 20140515
  Serious: Yes (Hospitalization, Other)
  Sender: FDA-Public Use
  Company Number: IL-ROXANE LABORATORIES, INC.-2013-RO-01359RO

PATIENT
  Age: 53 Year
  Sex: Female

DRUGS (12)
  1. AZATHIOPRINE [Suspect]
     Indication: AUTOIMMUNE HEPATITIS
     Dosage: 50 MG
  2. WARFARIN [Concomitant]
     Dosage: 22.5 MG
  3. METFORMIN [Concomitant]
     Dosage: 2550 MG
  4. OMEPRAZOLE [Concomitant]
     Dosage: 20 MG
  5. LOSARTAN [Concomitant]
     Dosage: 160 MG
  6. INSULIN DETEMIR [Concomitant]
  7. INSULIN ASPART [Concomitant]
  8. METOPROLOL [Concomitant]
     Dosage: 50 MG
  9. SPIRONOLACTONE [Concomitant]
     Dosage: 100 MG
  10. ASPIRIN [Concomitant]
     Dosage: 100 MG
  11. FUROSEMIDE [Concomitant]
     Dosage: 40 MG
  12. THYROXINE [Concomitant]
     Dosage: 50 MG

REACTIONS (2)
  - Pyrexia [Recovered/Resolved]
  - Cellulitis [Recovered/Resolved]
